FAERS Safety Report 9217932 (Version 2)
Quarter: 2013Q2

REPORT INFORMATION
  Report Type: Spontaneous
  Country: JP (occurrence: JP)
  Receive Date: 20130408
  Receipt Date: 20130531
  Transmission Date: 20140414
  Serious: Yes (Hospitalization, Other)
  Sender: FDA-Public Use
  Company Number: JP-PFIZER INC-2013107078

PATIENT
  Age: 73 Year
  Sex: Female
  Weight: 45 kg

DRUGS (5)
  1. TOPOTECIN [Suspect]
     Indication: COLON CANCER
     Dosage: UNK, ONCE A DAY
     Route: 041
     Dates: start: 20100130, end: 20100728
  2. CALCIUM LEVOFOLINATE [Concomitant]
     Dosage: UNK
     Dates: start: 20100130
  3. 5-FU [Concomitant]
     Dosage: UNK
     Dates: start: 20100130
  4. AVASTIN [Concomitant]
     Dosage: UNK
     Dates: start: 20100130
  5. ERBITUX [Concomitant]
     Dosage: UNK
     Dates: start: 20100728, end: 20100728

REACTIONS (11)
  - Appendicitis [Recovering/Resolving]
  - Pulmonary oedema [Recovering/Resolving]
  - Respiratory failure [Recovering/Resolving]
  - Pneumonia [Unknown]
  - Subcutaneous abscess [Recovering/Resolving]
  - Wound decomposition [Recovering/Resolving]
  - Abdominal abscess [Recovering/Resolving]
  - Postoperative abscess [Unknown]
  - Enterocutaneous fistula [Unknown]
  - Ascites [Recovering/Resolving]
  - Leukopenia [Unknown]
